FAERS Safety Report 24022820 (Version 1)
Quarter: 2024Q2

REPORT INFORMATION
  Report Type: Spontaneous
  Country: JP (occurrence: JP)
  Receive Date: 20240627
  Receipt Date: 20240627
  Transmission Date: 20240716
  Serious: Yes (Hospitalization, Other)
  Sender: FDA-Public Use
  Company Number: JP-BRISTOL-MYERS SQUIBB COMPANY-2024-102237

PATIENT
  Age: 76 Year
  Sex: Female
  Weight: 35.2 kg

DRUGS (2)
  1. ELIQUIS [Suspect]
     Active Substance: APIXABAN
     Indication: Product used for unknown indication
     Route: 048
  2. ELIQUIS [Suspect]
     Active Substance: APIXABAN
     Dosage: ONE TIME DOSE
     Route: 048
     Dates: start: 20240620, end: 20240620

REACTIONS (2)
  - Wrong dose [Unknown]
  - Fracture [Unknown]

NARRATIVE: CASE EVENT DATE: 20240620
